FAERS Safety Report 7354538-8 (Version None)
Quarter: 2011Q1

REPORT INFORMATION
  Report Type: 
  Country: None (occurrence: None)
  Receive Date: 20110316
  Receipt Date: 20100730
  Transmission Date: 20110831
  Serious: Yes (Life-Threatening, Hospitalization, Other)
  Sender: FDA-Public Use
  Company Number: US-BAYER-200943421NA

PATIENT
  Sex: Female
  Weight: 57.143 kg

DRUGS (17)
  1. YASMIN [Suspect]
     Indication: PRODUCT USED FOR UNKNOWN INDICATION
     Route: 048
  2. CORTICOSTEROIDS [Concomitant]
  3. NAPROXEN [Concomitant]
     Dosage: UNK UNK, PRN
  4. SINGULAIR [Concomitant]
     Dosage: UNK
     Dates: start: 20040801, end: 20100801
  5. YAZ [Suspect]
     Indication: PRODUCT USED FOR UNKNOWN INDICATION
     Dosage: UNK
     Route: 048
     Dates: end: 20090703
  6. CALCIUM WITH VITAMIN D [Concomitant]
  7. IBUPROFEN [Concomitant]
     Dosage: UNK UNK, PRN
  8. AMBIEN CR [Concomitant]
     Dosage: UNK
     Dates: start: 20040801, end: 20100801
  9. MAGNESIUM [Concomitant]
  10. TOPIRAMATE [Concomitant]
     Dosage: UNK
     Dates: start: 20040801, end: 20100801
  11. ADVIL LIQUI-GELS [Concomitant]
     Dosage: UNK UNK, PRN
  12. SYNTHROID [Concomitant]
     Dosage: UNK
     Dates: start: 20040801, end: 20100801
  13. ONE-A-DAY [MINERALS NOS,VITAMINS NOS] [Concomitant]
  14. ALEVE [Concomitant]
  15. PREDNISONE [Concomitant]
     Dosage: TAPERING PACK
  16. LEVAQUIN [Concomitant]
     Indication: SINUSITIS
     Dosage: UNK
     Dates: start: 20090801, end: 20090801
  17. BIOTIN [Concomitant]

REACTIONS (5)
  - TRANSVERSE SINUS THROMBOSIS [None]
  - ANXIETY [None]
  - PAIN [None]
  - INJURY [None]
  - HEADACHE [None]
